FAERS Safety Report 12134015 (Version 1)
Quarter: 2016Q1

REPORT INFORMATION
  Report Type: Spontaneous
  Country: US (occurrence: US)
  Receive Date: 20160301
  Receipt Date: 20160301
  Transmission Date: 20160526
  Serious: No
  Sender: FDA-Public Use
  Company Number: US-INSYS THERAPEUTICS, INC-INS201507-000302

PATIENT
  Sex: Male

DRUGS (2)
  1. SUBSYS [Suspect]
     Active Substance: FENTANYL
     Indication: BACK PAIN
  2. MORPHINE [Concomitant]
     Active Substance: MORPHINE
     Indication: BACK PAIN

REACTIONS (5)
  - Vision blurred [Unknown]
  - Hypersomnia [Unknown]
  - Drug ineffective for unapproved indication [Unknown]
  - Headache [Unknown]
  - Dizziness [Unknown]
